FAERS Safety Report 4996569-9 (Version None)
Quarter: 2006Q2

REPORT INFORMATION
  Report Type: 
  Country: None (occurrence: None)
  Receive Date: 20060505
  Receipt Date: 20060419
  Transmission Date: 20061013
  Serious: Yes (Other)
  Sender: FDA-Public Use
  Company Number: DSA_28065_2006

PATIENT
  Sex: Male

DRUGS (1)
  1. ATIVAN [Suspect]
     Dosage: DF PO
     Route: 048

REACTIONS (4)
  - AGITATION [None]
  - DRUG WITHDRAWAL SYNDROME [None]
  - DYSPNOEA [None]
  - NEUROMYOPATHY [None]
